FAERS Safety Report 4665867-0 (Version None)
Quarter: 2005Q2

REPORT INFORMATION
  Report Type: 
  Country: None (occurrence: None)
  Receive Date: 20050516
  Receipt Date: 20050516
  Transmission Date: 20051028
  Serious: Yes (Hospitalization, Other)
  Sender: FDA-Public Use
  Company Number: None

PATIENT
  Sex: Female
  Weight: 74.3 kg

DRUGS (3)
  1. OXALIPLATIN [Suspect]
     Indication: COLON CANCER
     Dosage: 85 MG/M2 IV DAY 1
     Route: 042
     Dates: start: 20050314, end: 20050503
  2. LEUCOVORIN CALCIUM [Suspect]
     Dosage: 400 MG/M2 IV DAY 1
     Route: 042
     Dates: end: 20050503
  3. FLUOROURACIL [Suspect]
     Dosage: 2400 MG/M2 CIV OVER 46 HOURS ON DAYS 1 AND 2
     Dates: end: 20050503

REACTIONS (2)
  - CHEST PAIN [None]
  - PULMONARY EMBOLISM [None]
